FAERS Safety Report 25936881 (Version 2)
Quarter: 2025Q4

REPORT INFORMATION
  Report Type: Spontaneous
  Country: BR (occurrence: BR)
  Receive Date: 20251017
  Receipt Date: 20251027
  Transmission Date: 20260118
  Serious: Yes (Hospitalization, Other)
  Sender: ELI LILLY AND COMPANY
  Company Number: BR-ELI_LILLY_AND_COMPANY-BR202510013731

PATIENT
  Age: 55 Year
  Sex: Male

DRUGS (4)
  1. MOUNJARO [Suspect]
     Active Substance: TIRZEPATIDE
     Indication: Insulin resistance
     Dosage: 2.5 MG, UNKNOWN
     Route: 058
     Dates: start: 20250927, end: 20250927
  2. MOUNJARO [Suspect]
     Active Substance: TIRZEPATIDE
     Indication: Insulin resistance
     Dosage: 2.5 MG, UNKNOWN
     Route: 058
     Dates: start: 20250927, end: 20250927
  3. MOUNJARO [Suspect]
     Active Substance: TIRZEPATIDE
     Indication: Insulin resistance
     Dosage: 2.5 MG, UNKNOWN
     Route: 058
     Dates: start: 20250927, end: 20250927
  4. MOUNJARO [Suspect]
     Active Substance: TIRZEPATIDE
     Indication: Insulin resistance
     Dosage: 2.5 MG, UNKNOWN
     Route: 058
     Dates: start: 20250927, end: 20250927

REACTIONS (13)
  - Fluid intake reduced [Unknown]
  - Feeding disorder [Recovered/Resolved]
  - Abdominal pain upper [Unknown]
  - Impaired gastric emptying [Unknown]
  - Abdominal pain [Unknown]
  - Dyspepsia [Unknown]
  - Eructation [Unknown]
  - Diarrhoea [Unknown]
  - Gastrooesophageal reflux disease [Unknown]
  - Vomiting [Unknown]
  - Flatulence [Unknown]
  - Nausea [Not Recovered/Not Resolved]
  - Off label use [Unknown]

NARRATIVE: CASE EVENT DATE: 20250927
